FAERS Safety Report 5890880-5 (Version None)
Quarter: 2008Q3

REPORT INFORMATION
  Report Type: 
  Country: None (occurrence: None)
  Receive Date: 20080918
  Receipt Date: 20080918
  Transmission Date: 20090109
  Serious: No
  Sender: FDA-Public Use
  Company Number: None

PATIENT
  Age: 65 Year
  Sex: Male
  Weight: 68.0396 kg

DRUGS (1)
  1. POTABA [Suspect]
     Indication: SCAR
     Dosage: 6 TABLETS 4 DAYS/DAY PO
     Route: 048
     Dates: start: 20080619, end: 20080627

REACTIONS (2)
  - CHILLS [None]
  - PYREXIA [None]
